FAERS Safety Report 6734483-9 (Version None)
Quarter: 2010Q2

REPORT INFORMATION
  Report Type: 
  Country: None (occurrence: None)
  Receive Date: 20100520
  Receipt Date: 20100506
  Transmission Date: 20101027
  Serious: Yes (Hospitalization, Other)
  Sender: FDA-Public Use
  Company Number: US-ELI_LILLY_AND_COMPANY-US201005002900

PATIENT
  Sex: Female

DRUGS (20)
  1. FORTEO [Suspect]
     Indication: OSTEOPOROSIS
     Dosage: 20 UG, DAILY (1/D)
     Dates: start: 20100101
  2. NITROGLYCERIN [Concomitant]
     Route: 060
  3. BETA BLOCKING AGENTS [Concomitant]
  4. IODINE [Concomitant]
  5. NORCO [Concomitant]
     Indication: PAIN
  6. PROZAC /00724401/ [Concomitant]
     Dosage: 40 MG, UNKNOWN
  7. PROZAC /00724401/ [Concomitant]
     Dosage: 20 MG, UNKNOWN
  8. SEROQUEL [Concomitant]
     Dosage: UNK, EACH EVENING
  9. REQUIP [Concomitant]
     Indication: RESTLESS LEGS SYNDROME
  10. FLEXERIL [Concomitant]
     Dosage: UNK, EACH EVENING
  11. MELOXICAM [Concomitant]
     Dosage: 15 MG, DAILY (1/D)
  12. LISINOPRIL [Concomitant]
     Dosage: 10 MG, DAILY (1/D)
  13. ATARAX [Concomitant]
     Dosage: 20 MG, EACH EVENING
  14. NEXIUM [Concomitant]
     Dosage: 40 MG, DAILY (1/D)
  15. COMBIVENT [Concomitant]
  16. ALBUTEROL [Concomitant]
  17. MORPHINE SULFATE [Concomitant]
     Dosage: 15 MG, 2/D
  18. GEMFIBROZIL [Concomitant]
     Dosage: 600 MG, UNKNOWN
  19. XANAX [Concomitant]
     Dosage: UNK, 3/D
  20. OXYCODONE WITH APAP [Concomitant]

REACTIONS (12)
  - CATHETERISATION CARDIAC [None]
  - CHOLECYSTECTOMY [None]
  - CONTUSION [None]
  - DEPRESSED MOOD [None]
  - EMOTIONAL DISORDER [None]
  - FALL [None]
  - HEADACHE [None]
  - HYSTERECTOMY [None]
  - OEDEMA PERIPHERAL [None]
  - SENSORY DISTURBANCE [None]
  - SLEEP DISORDER [None]
  - TIBIA FRACTURE [None]
